FAERS Safety Report 6529631-X (Version None)
Quarter: 2010Q1

REPORT INFORMATION
  Report Type: 
  Country: None (occurrence: None)
  Receive Date: 20100104
  Receipt Date: 20091217
  Transmission Date: 20100710
  Serious: Yes (Hospitalization)
  Sender: FDA-Public Use
  Company Number: 2009SP002685

PATIENT
  Age: 35 Year
  Sex: Female

DRUGS (2)
  1. ALVESCO [Suspect]
     Indication: ASTHMA
     Dosage: 200 UG; QD; INHALATION
     Route: 055
     Dates: start: 20090915, end: 20090916
  2. ALVESCO [Suspect]
     Indication: ASTHMA
     Dosage: 200 UG; QD; INHALATION
     Route: 055
     Dates: start: 20091002, end: 20091002

REACTIONS (4)
  - BODY TEMPERATURE INCREASED [None]
  - HAEMORRHAGE SUBCUTANEOUS [None]
  - RASH [None]
  - VIRAL RASH [None]
